FAERS Safety Report 17835143 (Version 1)
Quarter: 2020Q2

REPORT INFORMATION
  Report Type: Spontaneous
  Country: US (occurrence: US)
  Receive Date: 20200528
  Receipt Date: 20200528
  Transmission Date: 20200714
  Serious: No
  Sender: FDA-Public Use
  Company Number: None

PATIENT
  Sex: Female

DRUGS (3)
  1. HUMIRA [Suspect]
     Active Substance: ADALIMUMAB
     Dosage: ?          OTHER FREQUENCY:EVERY 14 DAYS;?
     Route: 058
  2. OTEZLA [Suspect]
     Active Substance: APREMILAST
  3. ENBREL [Suspect]
     Active Substance: ETANERCEPT

REACTIONS (2)
  - Drug ineffective [None]
  - Alopecia [None]
